FAERS Safety Report 5157783-5 (Version None)
Quarter: 2006Q4

REPORT INFORMATION
  Report Type: 
  Country: None (occurrence: None)
  Receive Date: 20061116
  Receipt Date: 20061106
  Transmission Date: 20070319
  Serious: Yes (Other)
  Sender: FDA-Public Use
  Company Number: 2006136646

PATIENT
  Sex: Male
  Weight: 101 kg

DRUGS (2)
  1. AMLODIPINE [Suspect]
     Indication: HYPERTENSION
     Dosage: ONCE DAILY, ORAL
     Route: 048
     Dates: start: 20060426, end: 20061019
  2. DICLOFENAC SODIUM [Concomitant]

REACTIONS (4)
  - BONE PAIN [None]
  - FATIGUE [None]
  - HYPOAESTHESIA [None]
  - MYALGIA [None]
